FAERS Safety Report 8083602 (Version 6)
Quarter: 2014Q1

REPORT INFORMATION
  Report Type: Spontaneous
  Country: US (occurrence: US)
  Receive Date: 20110810
  Receipt Date: 20140213
  Transmission Date: 20141002
  Serious: Yes (Other)
  Sender: FDA-Public Use
  Company Number: US-US-EMD SERONO, INC.-7073939

PATIENT
  Age: 67 Year
  Sex: Female
  Weight: 78 kg

DRUGS (4)
  1. REBIF [Suspect]
     Indication: MULTIPLE SCLEROSIS
     Route: 058
     Dates: start: 20110622
  2. LISINOPRIL [Concomitant]
     Indication: HYPERTENSION
  3. HYDROCHLOROTHIAZIDE [Concomitant]
     Indication: HYPERTENSION
  4. PREMARIN [Concomitant]
     Indication: HYSTERECTOMY

REACTIONS (9)
  - Breast cancer stage II [Recovered/Resolved]
  - Feeling abnormal [Recovering/Resolving]
  - Alopecia [Not Recovered/Not Resolved]
  - Nausea [Unknown]
  - Fatigue [Not Recovered/Not Resolved]
  - Injection site pruritus [Unknown]
  - Injection site irritation [Unknown]
  - Injection site pain [Recovering/Resolving]
  - Injection site erythema [Unknown]
